FAERS Safety Report 20020732 (Version 1)
Quarter: 2021Q4

REPORT INFORMATION
  Report Type: Spontaneous
  Country: None (occurrence: TW)
  Receive Date: 20211101
  Receipt Date: 20211101
  Transmission Date: 20220303
  Serious: Yes (Hospitalization, Other)
  Sender: FDA-Public Use
  Company Number: TW-Acella Pharmaceuticals, LLC-2121291

PATIENT
  Age: 28 Year
  Sex: Female

DRUGS (6)
  1. BROMPHENIRAMINE MAL, PSEUDOEPHEDRINE HCL, AND DEXTROMETHORPHAN HBR [Suspect]
     Active Substance: BROMPHENIRAMINE MALEATE\DEXTROMETHORPHAN HYDROBROMIDE\PSEUDOEPHEDRINE HYDROCHLORIDE
     Indication: Obesity
     Route: 065
  2. METFORMIN [Concomitant]
     Active Substance: METFORMIN HYDROCHLORIDE
     Route: 065
  3. LIOTHYRONINE SODIUM [Concomitant]
     Active Substance: LIOTHYRONINE SODIUM
     Route: 065
  4. HYDROCHLOROTHIAZIDE [Concomitant]
     Active Substance: HYDROCHLOROTHIAZIDE
     Route: 065
  5. FLUOXETINE HYDROCHLORIDE [Concomitant]
     Active Substance: FLUOXETINE HYDROCHLORIDE
     Route: 065
  6. OXAZOLAM [Concomitant]
     Active Substance: OXAZOLAM
     Route: 065

REACTIONS (10)
  - Dyspnoea [Unknown]
  - Decreased appetite [Unknown]
  - Muscular weakness [Unknown]
  - Hypophagia [Unknown]
  - Arthralgia [Unknown]
  - Tachycardia [Unknown]
  - Muscle atrophy [Unknown]
  - Blood creatine phosphokinase increased [Unknown]
  - Aspartate aminotransferase increased [Unknown]
  - Blood calcium increased [Unknown]
